FAERS Safety Report 17824795 (Version 1)
Quarter: 2020Q2

REPORT INFORMATION
  Report Type: Spontaneous
  Country: US (occurrence: US)
  Receive Date: 20200526
  Receipt Date: 20200526
  Transmission Date: 20200714
  Serious: Yes (Hospitalization)
  Sender: FDA-Public Use
  Company Number: None

PATIENT
  Age: 45 Year
  Sex: Female
  Weight: 63 kg

DRUGS (1)
  1. HEPARIN 100 UNITS/ML [Suspect]
     Active Substance: HEPARIN SODIUM
     Indication: PULMONARY EMBOLISM
     Dosage: ?          OTHER FREQUENCY:CONTINUOUS DRIP;?
     Route: 041
     Dates: start: 20200523

REACTIONS (1)
  - Product use issue [None]

NARRATIVE: CASE EVENT DATE: 20200525
